FAERS Safety Report 4660277-4 (Version None)
Quarter: 2005Q2

REPORT INFORMATION
  Report Type: 
  Country: None (occurrence: None)
  Receive Date: 20050427
  Receipt Date: 20050126
  Transmission Date: 20051028
  Serious: No
  Sender: FDA-Public Use
  Company Number: 212045

PATIENT
  Sex: Male
  Weight: 79.4 kg

DRUGS (1)
  1. XOLAIR [Suspect]
     Dosage: 375MG, QW

REACTIONS (1)
  - DRUG INEFFECTIVE [None]
